FAERS Safety Report 6847281-2 (Version None)
Quarter: 2010Q3

REPORT INFORMATION
  Report Type: 
  Country: None (occurrence: None)
  Receive Date: 20100713
  Receipt Date: 20100705
  Transmission Date: 20110219
  Serious: Yes (Other)
  Sender: FDA-Public Use
  Company Number: 009349

PATIENT
  Age: 41 Year
  Sex: Female

DRUGS (2)
  1. KEPPRA [Suspect]
     Indication: COMPLEX PARTIAL SEIZURES
     Dosage: (250 MG), (1250 MG BID)
  2. TOPIRAMATE [Concomitant]

REACTIONS (3)
  - ALOPECIA [None]
  - ATONIC SEIZURES [None]
  - CONVULSION [None]
